FAERS Safety Report 8759876 (Version 1)
Quarter: 2012Q4

REPORT INFORMATION
  Report Type: 
  Country: FR (occurrence: FR)
  Receive Date: 20120829
  Receipt Date: 20120829
  Transmission Date: 20130627
  Serious: Yes (Other)
  Sender: FDA-Public Use
  Company Number: FR-UCBSA-064043

PATIENT
  Age: 8 Year
  Sex: Male

DRUGS (17)
  1. KEPPRA [Suspect]
     Indication: EPILEPSY
     Route: 048
     Dates: start: 20120628
  2. AMOXICILLINE [Suspect]
     Indication: INFECTION PROPHYLAXIS
     Dosage: 1500 MG DAILY
     Route: 048
     Dates: end: 20120804
  3. CELECTOL [Suspect]
     Indication: HYPERTENSION
     Dosage: 200 MG DAILY
     Route: 048
     Dates: start: 20120626
  4. ZELITREX [Suspect]
     Indication: INFECTION PROPHYLAXIS
     Dosage: 1 G DAILY
     Route: 048
  5. SPORANOX [Suspect]
     Indication: INFECTION PROPHYLAXIS
     Route: 048
  6. ADALATE [Suspect]
     Indication: HYPERTENSION
     Dosage: 40 MG DAILY
     Route: 048
     Dates: start: 201206, end: 201206
  7. ADALATE [Suspect]
     Indication: HYPERTENSION
     Dates: start: 2012
  8. METHOTREXATE [Concomitant]
     Indication: PROPHYLAXIS
     Dates: start: 20120328
  9. HEPARIN [Concomitant]
     Indication: PROPHYLAXIS
  10. PROSTINE [Concomitant]
     Indication: PROPHYLAXIS
  11. IMATINIB [Concomitant]
     Dates: start: 20120514, end: 20120514
  12. IMATINIB [Concomitant]
     Dates: start: 20120605, end: 20120605
  13. DEFIBROTIDE [Concomitant]
     Indication: PROPHYLAXIS
  14. ALDACTONE [Concomitant]
     Indication: HYPERTENSION
     Dates: start: 20120622, end: 20120704
  15. LASILIX [Concomitant]
     Indication: HYPERTENSION
     Dates: start: 20120622
  16. AERIUS [Concomitant]
     Dates: start: 201207, end: 2012
  17. POLARAMINE [Concomitant]

REACTIONS (5)
  - Rash maculo-papular [Unknown]
  - Pruritus [Unknown]
  - Hyponatraemia [Recovered/Resolved]
  - Hyperkalaemia [Recovered/Resolved]
  - Blood creatinine decreased [Unknown]
